FAERS Safety Report 5837685-9 (Version None)
Quarter: 2008Q3

REPORT INFORMATION
  Report Type: 
  Country: None (occurrence: None)
  Receive Date: 20080731
  Receipt Date: 20080609
  Transmission Date: 20090109
  Serious: No
  Sender: FDA-Public Use
  Company Number: US200806003205

PATIENT
  Age: 70 Year
  Sex: Female
  Weight: 99.3 kg

DRUGS (4)
  1. BYETTA [Suspect]
     Indication: TYPE 2 DIABETES MELLITUS
     Dosage: 5 UG, 2/D, SUBCUTANEOUS
     Route: 058
     Dates: start: 20080501
  2. EXENATIDE 5MCG PEN, DISPOSABLE DEVICE (EXENATIDE PEN (5MCG)) PEN,DISPO [Concomitant]
  3. GLIPIZIDE [Concomitant]
  4. ACTOS /UNK/ (PIOGLITAZONE HYDROCHLORIDE) [Concomitant]

REACTIONS (7)
  - ABDOMINAL DISTENSION [None]
  - ANOREXIA [None]
  - ASTHENIA [None]
  - DYSPEPSIA [None]
  - EYELID FUNCTION DISORDER [None]
  - FATIGUE [None]
  - WEIGHT DECREASED [None]
